FAERS Safety Report 10112060 (Version 1)
Quarter: 2014Q2

REPORT INFORMATION
  Report Type: Spontaneous
  Country: US (occurrence: US)
  Receive Date: 20140425
  Receipt Date: 20140425
  Transmission Date: 20141212
  Serious: Yes (Other)
  Sender: FDA-Public Use
  Company Number: US-TEVA-477021USA

PATIENT
  Age: 60 Year
  Sex: Male

DRUGS (1)
  1. COPAXONE [Suspect]
     Indication: MULTIPLE SCLEROSIS
     Dates: start: 20110414

REACTIONS (4)
  - Multiple sclerosis relapse [Unknown]
  - Asthenia [Unknown]
  - Hypoaesthesia [Recovered/Resolved]
  - Vision blurred [Unknown]
